FAERS Safety Report 5905259-7 (Version None)
Quarter: 2008Q4

REPORT INFORMATION
  Report Type: 
  Country: None (occurrence: None)
  Receive Date: 20081001
  Receipt Date: 20080916
  Transmission Date: 20090506
  Serious: Yes (Hospitalization)
  Sender: FDA-Public Use
  Company Number: JP-GENENTECH-268514

PATIENT
  Sex: Male
  Weight: 63 kg

DRUGS (3)
  1. AVASTIN [Suspect]
     Indication: COLORECTAL CANCER METASTATIC
     Dosage: 310 MG, Q2W
     Route: 041
     Dates: start: 20080701, end: 20080909
  2. TS-1 [Suspect]
     Indication: COLORECTAL CANCER METASTATIC
     Dosage: 50 MG, BID
     Route: 048
     Dates: start: 20080701, end: 20080909
  3. IRINOTECAN HCL [Suspect]
     Indication: COLORECTAL CANCER METASTATIC
     Dosage: 160 MG, Q2W
     Route: 041
     Dates: start: 20080701, end: 20080909

REACTIONS (3)
  - DIARRHOEA [None]
  - PALMAR-PLANTAR ERYTHRODYSAESTHESIA SYNDROME [None]
  - STOMATITIS [None]
